FAERS Safety Report 11816126 (Version 1)
Quarter: 2015Q4

REPORT INFORMATION
  Report Type: Report from Study
  Country: AU (occurrence: AU)
  Receive Date: 20151209
  Receipt Date: 20151209
  Transmission Date: 20160305
  Serious: Yes (Other)
  Sender: FDA-Public Use
  Company Number: AU-REGENERON PHARMACEUTICALS, INC.-2015-12101

PATIENT

DRUGS (2)
  1. EYLEA [Suspect]
     Active Substance: AFLIBERCEPT
     Indication: NEOVASCULAR AGE-RELATED MACULAR DEGENERATION
     Dosage: 2 MG MILLIGRAM(S), 6 WEEKLY
     Route: 031
     Dates: start: 201401
  2. EYLEA [Suspect]
     Active Substance: AFLIBERCEPT
     Dosage: 2 MG MILLIGRAM(S), 5 WEEKLY, LEFT EYE
     Route: 031
     Dates: start: 20151124, end: 20151124

REACTIONS (8)
  - Kidney infection [Unknown]
  - Blindness transient [Unknown]
  - Retinal haemorrhage [Unknown]
  - Vision blurred [Unknown]
  - Eye disorder [Unknown]
  - Blindness [Unknown]
  - Eye pain [Recovered/Resolved]
  - Lacrimation increased [Recovered/Resolved]

NARRATIVE: CASE EVENT DATE: 201507
